FAERS Safety Report 22037423 (Version 1)
Quarter: 2023Q1

REPORT INFORMATION
  Report Type: Spontaneous
  Country: US (occurrence: US)
  Receive Date: 20230226
  Receipt Date: 20230226
  Transmission Date: 20230418
  Serious: No
  Sender: FDA-Public Use
  Company Number: US-JNJFOC-20230249170

PATIENT
  Sex: Male

DRUGS (2)
  1. CONCERTA [Suspect]
     Active Substance: METHYLPHENIDATE HYDROCHLORIDE
     Indication: Affective disorder
     Dosage: 36 MG DAILY
     Route: 048
  2. BUPROPION [Suspect]
     Active Substance: BUPROPION
     Indication: Affective disorder
     Dosage: DAILY
     Route: 065

REACTIONS (3)
  - Weight increased [Unknown]
  - Drug ineffective for unapproved indication [Unknown]
  - Off label use [Unknown]
